FAERS Safety Report 25043461 (Version 3)
Quarter: 2025Q2

REPORT INFORMATION
  Report Type: Report from Study
  Country: CO (occurrence: CO)
  Receive Date: 20250306
  Receipt Date: 20250417
  Transmission Date: 20250717
  Serious: Yes (Life-Threatening, Other)
  Sender: ROCHE
  Company Number: CO-002147023-PHHY2018CO011393

PATIENT
  Age: 72 Year
  Sex: Female
  Weight: 65 kg

DRUGS (29)
  1. XOLAIR [Suspect]
     Active Substance: OMALIZUMAB
     Indication: Asthma
     Route: 058
     Dates: start: 201411
  2. XOLAIR [Suspect]
     Active Substance: OMALIZUMAB
     Dosage: 3 (375 MG), BIW (BIWEEKLY
     Route: 058
     Dates: start: 20141111
  3. XOLAIR [Suspect]
     Active Substance: OMALIZUMAB
     Dosage: 450 MG,BIW (ONCE EVERY TWO WEEKS)
     Route: 058
     Dates: start: 20141111
  4. XOLAIR [Suspect]
     Active Substance: OMALIZUMAB
     Dosage: (STARTED 2 YEARS AGO) BIW (BIWEEKLY/EVERY FIFTEEN DAYS)
     Route: 058
     Dates: start: 20141201
  5. XOLAIR [Suspect]
     Active Substance: OMALIZUMAB
     Route: 058
     Dates: start: 20190320
  6. XOLAIR [Suspect]
     Active Substance: OMALIZUMAB
     Route: 058
  7. XOLAIR [Suspect]
     Active Substance: OMALIZUMAB
     Route: 058
  8. XOLAIR [Suspect]
     Active Substance: OMALIZUMAB
     Route: 058
  9. XOLAIR [Suspect]
     Active Substance: OMALIZUMAB
     Dosage: 375 MG, EVERY 15 DAYS
     Route: 058
  10. XOLAIR [Suspect]
     Active Substance: OMALIZUMAB
     Route: 050
  11. XOLAIR [Suspect]
     Active Substance: OMALIZUMAB
     Dosage: 450 MG,BIW (ONCE EVERY TWO WEEKS)
     Route: 058
  12. XOLAIR [Suspect]
     Active Substance: OMALIZUMAB
     Route: 058
  13. XOLAIR [Suspect]
     Active Substance: OMALIZUMAB
     Route: 058
  14. XOLAIR [Suspect]
     Active Substance: OMALIZUMAB
     Route: 058
  15. XOLAIR [Suspect]
     Active Substance: OMALIZUMAB
     Route: 058
  16. XOLAIR [Suspect]
     Active Substance: OMALIZUMAB
     Dosage: 375 MG, EVERY 15 DAYS
     Route: 058
  17. XOLAIR [Suspect]
     Active Substance: OMALIZUMAB
     Route: 050
  18. XOLAIR [Suspect]
     Active Substance: OMALIZUMAB
     Dosage: 450 MG,BIW (ONCE EVERY TWO WEEKS)
     Route: 058
  19. XOLAIR [Suspect]
     Active Substance: OMALIZUMAB
     Route: 058
  20. XOLAIR [Suspect]
     Active Substance: OMALIZUMAB
     Route: 058
  21. VALSARTAN [Suspect]
     Active Substance: VALSARTAN
     Indication: Hypertension
     Dosage: 80 MG, QD
     Route: 048
  22. VALSARTAN [Suspect]
     Active Substance: VALSARTAN
     Route: 048
  23. VALSARTAN [Suspect]
     Active Substance: VALSARTAN
     Dosage: 80 MG, QD
     Route: 048
  24. VALSARTAN [Suspect]
     Active Substance: VALSARTAN
     Route: 048
  25. EUTHYROX [Concomitant]
     Active Substance: LEVOTHYROXINE SODIUM
     Indication: Hyperthyroidism
     Dosage: 75 MG, QD
     Route: 065
  26. EUTHYROX [Concomitant]
     Active Substance: LEVOTHYROXINE SODIUM
     Dosage: 75 MG, QD
     Route: 065
  27. LEVOTHYROXINE [Concomitant]
     Active Substance: LEVOTHYROXINE
     Route: 065
  28. LEVOTHYROXINE [Concomitant]
     Active Substance: LEVOTHYROXINE
     Route: 065
  29. TIOTROPIUM [Concomitant]
     Active Substance: TIOTROPIUM
     Indication: Product used for unknown indication
     Dosage: UNK, QD (2 PUFFS)

REACTIONS (14)
  - Asthma [Unknown]
  - Asthmatic crisis [Recovering/Resolving]
  - Influenza [Unknown]
  - Skin haemorrhage [Recovering/Resolving]
  - Hypersensitivity [Not Recovered/Not Resolved]
  - Nasopharyngitis [Unknown]
  - Urticaria [Unknown]
  - Pruritus [Unknown]
  - Arthralgia [Not Recovered/Not Resolved]
  - Injection site bruising [Not Recovered/Not Resolved]
  - Deafness [Unknown]
  - Incorrect dose administered [Unknown]
  - Parkinson^s disease [Not Recovered/Not Resolved]
  - Nasal congestion [Unknown]

NARRATIVE: CASE EVENT DATE: 20180120
